FAERS Safety Report 16951399 (Version 1)
Quarter: 2019Q4

REPORT INFORMATION
  Report Type: Spontaneous
  Country: US (occurrence: US)
  Receive Date: 20191023
  Receipt Date: 20191023
  Transmission Date: 20200122
  Serious: No
  Sender: FDA-Public Use
  Company Number: US-009507513-1909USA012668

PATIENT
  Age: 68 Year
  Sex: Female

DRUGS (4)
  1. BELSOMRA [Suspect]
     Active Substance: SUVOREXANT
     Indication: INSOMNIA
     Dosage: 10MG/ ONE TABLET AT NIGHT
     Route: 048
     Dates: start: 20190903, end: 20190905
  2. BELSOMRA [Suspect]
     Active Substance: SUVOREXANT
     Dosage: 10MG/ ONE TABLET AT NIGHT
     Route: 048
     Dates: start: 201909, end: 20190913
  3. LEVOTHYROXINE SODIUM. [Concomitant]
     Active Substance: LEVOTHYROXINE SODIUM
     Dosage: UNK
  4. BELSOMRA [Suspect]
     Active Substance: SUVOREXANT
     Dosage: 10MG/ ONE TABLET AT NIGHT
     Route: 048
     Dates: start: 20190909, end: 20190911

REACTIONS (3)
  - Headache [Recovered/Resolved]
  - Drug ineffective [Recovered/Resolved]
  - Palpitations [Recovered/Resolved]

NARRATIVE: CASE EVENT DATE: 20190903
